FAERS Safety Report 7161770-5 (Version None)
Quarter: 2010Q4

REPORT INFORMATION
  Report Type: 
  Country: None (occurrence: None)
  Receive Date: 20101201
  Receipt Date: 20101115
  Transmission Date: 20110411
  Serious: Yes (Life-Threatening, Other)
  Sender: FDA-Public Use
  Company Number: 200912877BYL

PATIENT
  Age: 74 Year
  Sex: Male
  Weight: 69 kg

DRUGS (10)
  1. NEXAVAR [Suspect]
     Indication: HEPATIC NEOPLASM MALIGNANT
     Dosage: 800 MG, TOTAL DAILY, ORAL; 40000 MG, TOTAL DAILY, ORAL; 800 MG, QD, ORAL
     Route: 048
     Dates: start: 20090707, end: 20090713
  2. NEXAVAR [Suspect]
     Indication: HEPATIC NEOPLASM MALIGNANT
     Dosage: 800 MG, TOTAL DAILY, ORAL; 40000 MG, TOTAL DAILY, ORAL; 800 MG, QD, ORAL
     Route: 048
     Dates: start: 20090714, end: 20090826
  3. NEXAVAR [Suspect]
     Indication: HEPATIC NEOPLASM MALIGNANT
     Dosage: 800 MG, TOTAL DAILY, ORAL; 40000 MG, TOTAL DAILY, ORAL; 800 MG, QD, ORAL
     Route: 048
     Dates: start: 20090827, end: 20091105
  4. NEXAVAR [Suspect]
     Indication: HEPATIC NEOPLASM MALIGNANT
     Dosage: 800 MG, TOTAL DAILY, ORAL; 40000 MG, TOTAL DAILY, ORAL; 800 MG, QD, ORAL
     Route: 048
     Dates: start: 20091106, end: 20100113
  5. NEXAVAR [Suspect]
     Indication: HEPATIC NEOPLASM MALIGNANT
     Dosage: 800 MG, TOTAL DAILY, ORAL; 40000 MG, TOTAL DAILY, ORAL; 800 MG, QD, ORAL
     Route: 048
     Dates: start: 20100114, end: 20100407
  6. NEXAVAR [Suspect]
     Indication: HEPATIC NEOPLASM MALIGNANT
     Dosage: 800 MG, TOTAL DAILY, ORAL; 40000 MG, TOTAL DAILY, ORAL; 800 MG, QD, ORAL
     Route: 048
     Dates: start: 20100408, end: 20100624
  7. UREPEARL [Concomitant]
  8. LOPEMIN [Concomitant]
  9. ZADITEN [Concomitant]
  10. PRIMPERAN TAB [Concomitant]

REACTIONS (8)
  - ALOPECIA [None]
  - BLOOD LACTATE DEHYDROGENASE INCREASED [None]
  - DECREASED APPETITE [None]
  - DEPRESSION [None]
  - DIARRHOEA [None]
  - DYSPHONIA [None]
  - FATIGUE [None]
  - LIVER DISORDER [None]
